FAERS Safety Report 8823326 (Version 2)
Quarter: 2013Q4

REPORT INFORMATION
  Report Type: Spontaneous
  Country: US (occurrence: US)
  Receive Date: 20121003
  Receipt Date: 20131115
  Transmission Date: 20140711
  Serious: Yes (Other)
  Sender: FDA-Public Use
  Company Number: US-009507513-1209USA010320

PATIENT
  Sex: Female

DRUGS (5)
  1. FOSAMAX [Suspect]
     Indication: OSTEOPOROSIS
     Dosage: 10 MG, QD
     Route: 048
     Dates: start: 19990108, end: 20100917
  2. FOSAMAX [Suspect]
     Dosage: 70 MG, QW
     Route: 048
     Dates: start: 19990108, end: 20100917
  3. VITAMINS (UNSPECIFIED) [Concomitant]
     Dosage: 1 DF, QD
     Dates: start: 1993
  4. CITRACAL + D [Concomitant]
     Dosage: 1 DF, QD
     Dates: start: 1993, end: 2010
  5. IMITREX (SUMATRIPTAN) [Concomitant]
     Indication: MIGRAINE
     Dosage: UNK
     Dates: start: 1993

REACTIONS (7)
  - Femur fracture [Unknown]
  - Adverse event [Unknown]
  - Adverse event [Unknown]
  - Inflammatory bowel disease [Unknown]
  - Vitamin D deficiency [Unknown]
  - Impaired healing [Unknown]
  - Rash [Unknown]
